FAERS Safety Report 15074632 (Version 1)
Quarter: 2018Q2

REPORT INFORMATION
  Report Type: Spontaneous
  Country: US (occurrence: US)
  Receive Date: 20180627
  Receipt Date: 20180627
  Transmission Date: 20180711
  Serious: No
  Sender: FDA-Public Use
  Company Number: US-SAOL THERAPEUTICS-2018SAO00718

PATIENT
  Sex: Female

DRUGS (1)
  1. LIORESAL [Suspect]
     Active Substance: BACLOFEN
     Indication: MULTIPLE SCLEROSIS
     Dosage: 60-100 ?G, \DAY
     Route: 037

REACTIONS (4)
  - Urinary retention [Recovering/Resolving]
  - Muscle spasticity [Recovering/Resolving]
  - Musculoskeletal pain [Recovering/Resolving]
  - Cystitis [Recovering/Resolving]
